FAERS Safety Report 9375785 (Version 1)
Quarter: 2013Q2

REPORT INFORMATION
  Report Type: Spontaneous
  Country: US (occurrence: US)
  Receive Date: 20130628
  Receipt Date: 20130628
  Transmission Date: 20140414
  Serious: Yes (Hospitalization, Other)
  Sender: FDA-Public Use
  Company Number: US-BAXTER-2013BAX022475

PATIENT
  Sex: Female

DRUGS (2)
  1. DIANEAL LOW CALCIUM [Suspect]
     Indication: PERITONEAL DIALYSIS
     Route: 033
  2. BACLOFEN [Suspect]
     Indication: MUSCLE RELAXANT THERAPY
     Route: 065
     Dates: start: 201306

REACTIONS (5)
  - Back injury [Unknown]
  - Skeletal injury [Unknown]
  - Drug hypersensitivity [Recovered/Resolved]
  - Incoherent [Recovered/Resolved]
  - Loss of consciousness [Recovered/Resolved]
